FAERS Safety Report 6616465-0 (Version None)
Quarter: 2010Q1

REPORT INFORMATION
  Report Type: 
  Country: None (occurrence: None)
  Receive Date: 20100305
  Receipt Date: 20100223
  Transmission Date: 20100710
  Serious: No
  Sender: FDA-Public Use
  Company Number: US-B.I. PHARMACEUTICALS,INC./RIDGEFIELD-2010-BP-01742BP

PATIENT
  Sex: Female

DRUGS (3)
  1. MICARDIS [Suspect]
     Dosage: 40 MG
     Dates: end: 20100208
  2. COREG [Concomitant]
  3. SIMVASTATIN [Concomitant]

REACTIONS (1)
  - MYALGIA [None]
